FAERS Safety Report 8320691-2 (Version None)
Quarter: 2012Q2

REPORT INFORMATION
  Report Type: 
  Country: None (occurrence: None)
  Receive Date: 20120430
  Receipt Date: 20120423
  Transmission Date: 20120825
  Serious: Yes (Other)
  Sender: FDA-Public Use
  Company Number: US-ACCORD-013287

PATIENT
  Age: 51 Year
  Sex: Female

DRUGS (1)
  1. ETOPOSIDE [Suspect]
     Route: 042
     Dates: start: 20120319

REACTIONS (8)
  - BACK PAIN [None]
  - COUGH [None]
  - OXYGEN SATURATION DECREASED [None]
  - ARTHRALGIA [None]
  - FLUSHING [None]
  - BURNING SENSATION [None]
  - CHEST PAIN [None]
  - HYPERHIDROSIS [None]
